FAERS Safety Report 12572724 (Version 1)
Quarter: 2016Q3

REPORT INFORMATION
  Report Type: Report from Study
  Country: US (occurrence: US)
  Receive Date: 20160720
  Receipt Date: 20160720
  Transmission Date: 20161109
  Serious: No
  Sender: FDA-Public Use
  Company Number: US-ALEXION-A201605241

PATIENT
  Sex: Male

DRUGS (1)
  1. STRENSIQ [Suspect]
     Active Substance: ASFOTASE ALFA
     Indication: HYPOPHOSPHATASIA
     Dosage: UNK
     Route: 058

REACTIONS (5)
  - Dizziness [Recovering/Resolving]
  - Wheezing [Recovering/Resolving]
  - Injection site erythema [Recovering/Resolving]
  - Pruritus generalised [Recovering/Resolving]
  - Nausea [Recovering/Resolving]
